FAERS Safety Report 5340267-9 (Version None)
Quarter: 2007Q2

REPORT INFORMATION
  Report Type: 
  Country: None (occurrence: None)
  Receive Date: 20070405
  Receipt Date: 20070118
  Transmission Date: 20071010
  Serious: No
  Sender: FDA-Public Use
  Company Number: US200701003542

PATIENT
  Age: 28 Year
  Sex: Female

DRUGS (11)
  1. CYMBALTA [Suspect]
     Indication: DEPRESSION
     Dosage: 30 MG, EACH EVENING
     Dates: start: 20070101, end: 20070101
  2. PROZAC [Suspect]
     Indication: DEPRESSION
     Dates: start: 19960201, end: 19960101
  3. EFFEXOR [Concomitant]
  4. ADDERALL XR (AMFETAMINE ASPARTATE, AMFETAMINE SULFATE, DEXAMFETAMINE S [Concomitant]
  5. ZYRTEC [Concomitant]
  6. MULTIVITAMIN LAPPE (VITAMINS NOS) [Concomitant]
  7. CALCIUM (CALCIUM) [Concomitant]
  8. FIBERMED (FIBRE, DIETARY) [Concomitant]
  9. ASCORBIC ACID [Concomitant]
  10. NASONEX [Concomitant]
  11. XANAX /USA/ (ALPRAZOLAM) [Concomitant]

REACTIONS (8)
  - ABDOMINAL PAIN [None]
  - ANGER [None]
  - DIARRHOEA [None]
  - INFLUENZA LIKE ILLNESS [None]
  - INSOMNIA [None]
  - IRRITABILITY [None]
  - MALAISE [None]
  - PERSONALITY CHANGE [None]
